FAERS Safety Report 5509817-3 (Version None)
Quarter: 2007Q4

REPORT INFORMATION
  Report Type: 
  Country: None (occurrence: None)
  Receive Date: 20071108
  Receipt Date: 20071030
  Transmission Date: 20080405
  Serious: Yes (Hospitalization)
  Sender: FDA-Public Use
  Company Number: CN-NOVOPROD-268446

PATIENT
  Age: 47 Year
  Sex: Female
  Weight: 55 kg

DRUGS (3)
  1. NOVOLOG MIX 70/30 [Suspect]
     Indication: DIABETES MELLITUS
     Dosage: 26 IU, QD
     Route: 058
     Dates: start: 20070306, end: 20070817
  2. NOVOLOG MIX 70/30 [Suspect]
     Dosage: 20 IU, QD
     Route: 058
     Dates: start: 20070817, end: 20070820
  3. NOVOLOG MIX 70/30 [Suspect]
     Dosage: 26 IU, QD
     Route: 058
     Dates: start: 20070820, end: 20070905

REACTIONS (1)
  - HYPOGLYCAEMIC UNCONSCIOUSNESS [None]
